FAERS Safety Report 7491370-9 (Version None)
Quarter: 2011Q2

REPORT INFORMATION
  Report Type: 
  Country: None (occurrence: None)
  Receive Date: 20110519
  Receipt Date: 20110504
  Transmission Date: 20111010
  Serious: Yes (Other)
  Sender: FDA-Public Use
  Company Number: PHHY2010MX50635

PATIENT
  Sex: Male

DRUGS (2)
  1. CISTICID [Concomitant]
     Dosage: UNK
     Dates: start: 20100727
  2. TRILEPTAL [Suspect]
     Indication: EPILEPSY
     Dosage: 900 MG/DAY
     Route: 048
     Dates: start: 20100727, end: 20101025

REACTIONS (3)
  - HEADACHE [None]
  - TAENIASIS [None]
  - VISION BLURRED [None]
